FAERS Safety Report 23226608 (Version 3)
Quarter: 2024Q3

REPORT INFORMATION
  Report Type: Report from Study
  Country: IE (occurrence: IE)
  Receive Date: 20231124
  Receipt Date: 20240711
  Transmission Date: 20241016
  Serious: Yes (Hospitalization)
  Sender: JOHNSON AND JOHNSON
  Company Number: IE-JNJFOC-20230940685

PATIENT
  Age: 75 Year
  Sex: Female

DRUGS (11)
  1. STELARA [Suspect]
     Active Substance: USTEKINUMAB
     Indication: Giant cell arteritis
     Route: 058
     Dates: start: 20171228
  2. GLICLAZIDE [Concomitant]
     Active Substance: GLICLAZIDE
  3. METFORMIN [Concomitant]
     Active Substance: METFORMIN HYDROCHLORIDE
  4. MIRABEGRON [Concomitant]
     Active Substance: MIRABEGRON
  5. ESOMEPRAZOLE [Concomitant]
     Active Substance: ESOMEPRAZOLE
  6. FUROSEMIDE [Concomitant]
     Active Substance: FUROSEMIDE
  7. LERCANIDIPINE [Concomitant]
     Active Substance: LERCANIDIPINE
  8. NEBIVOLOL [Concomitant]
     Active Substance: NEBIVOLOL
  9. ASPIRIN [Concomitant]
     Active Substance: ASPIRIN
  10. OMESAR [OMEPRAZOLE] [Concomitant]
  11. PAROXETINE HYDROCHLORIDE [Concomitant]
     Active Substance: PAROXETINE HYDROCHLORIDE\PAROXETINE HYDROCHLORIDE ANHYDROUS

REACTIONS (4)
  - Abscess intestinal [Recovering/Resolving]
  - Hospitalisation [Not Recovered/Not Resolved]
  - Peripheral swelling [Not Recovered/Not Resolved]
  - Product dose omission issue [Unknown]

NARRATIVE: CASE EVENT DATE: 20230725
